FAERS Safety Report 7964819-2 (Version None)
Quarter: 2011Q4

REPORT INFORMATION
  Report Type: 
  Country: None (occurrence: None)
  Receive Date: 20111205
  Receipt Date: 20111121
  Transmission Date: 20120403
  Serious: Yes (Death)
  Sender: FDA-Public Use
  Company Number: CIP11002346

PATIENT
  Age: 62 Year
  Sex: Male

DRUGS (2)
  1. ACTONEL [Suspect]
     Dosage: 35 MG, ORAL
     Route: 048
     Dates: start: 20040210
  2. NEXIUM [Concomitant]

REACTIONS (1)
  - GASTRIC ULCER HAEMORRHAGE [None]
